FAERS Safety Report 9580289 (Version 1)
Quarter: 2013Q3

REPORT INFORMATION
  Report Type: Spontaneous
  Country: SI (occurrence: None)
  Receive Date: 20130916
  Receipt Date: 20130916
  Transmission Date: 20140515
  Serious: Yes (Other)
  Sender: FDA-Public Use
  Company Number: JPI-P-024612

PATIENT
  Age: 20 Year
  Sex: Female
  Weight: 59 kg

DRUGS (1)
  1. XYREM [Suspect]
     Indication: CATAPLEXY
     Dosage: 7.5 GM  (3.75 GM,  2 IN 1 D), ORAL
     Route: 048

REACTIONS (3)
  - Weight decreased [None]
  - Diarrhoea [None]
  - Narcolepsy [None]
